FAERS Safety Report 15005149 (Version 1)
Quarter: 2018Q2

REPORT INFORMATION
  Report Type: Spontaneous
  Country: US (occurrence: US)
  Receive Date: 20180613
  Receipt Date: 20180613
  Transmission Date: 20180711
  Serious: Yes (Hospitalization, Other)
  Sender: FDA-Public Use
  Company Number: US-GLAXOSMITHKLINE-US2018GSK103915

PATIENT
  Age: 51 Year
  Sex: Female

DRUGS (9)
  1. VITAMIN B12 [Concomitant]
     Active Substance: CYANOCOBALAMIN
     Route: 058
  2. MULTIVITAMIN [Concomitant]
     Active Substance: VITAMINS
  3. BENLYSTA [Suspect]
     Active Substance: BELIMUMAB
     Indication: SYSTEMIC LUPUS ERYTHEMATOSUS
     Dosage: UNK
     Dates: end: 201803
  4. METOPROLOL. [Concomitant]
     Active Substance: METOPROLOL
  5. FLEXERIL (NOS) [Concomitant]
  6. LEVOTHYROXINE. [Concomitant]
     Active Substance: LEVOTHYROXINE
  7. HYDROCHLOROTHIAZIDE + TRIAMTERENE [Concomitant]
     Active Substance: HYDROCHLOROTHIAZIDE\TRIAMTERENE
  8. GABAPENTIN. [Concomitant]
     Active Substance: GABAPENTIN
  9. TRAZODONE [Concomitant]
     Active Substance: TRAZODONE HYDROCHLORIDE

REACTIONS (5)
  - Staphylococcal infection [Recovered/Resolved]
  - Abdominal abscess [Recovered/Resolved]
  - Abdominoplasty [Recovering/Resolving]
  - Sepsis [Unknown]
  - Immune system disorder [Unknown]

NARRATIVE: CASE EVENT DATE: 201804
